FAERS Safety Report 17802878 (Version 1)
Quarter: 2020Q2

REPORT INFORMATION
  Report Type: Spontaneous
  Country: US (occurrence: US)
  Receive Date: 20200519
  Receipt Date: 20200519
  Transmission Date: 20200714
  Serious: Yes (Hospitalization)
  Sender: FDA-Public Use
  Company Number: None

PATIENT
  Age: 83 Year
  Sex: Male

DRUGS (9)
  1. DRONABINOL 2.5MG [Concomitant]
     Active Substance: DRONABINOL
  2. LEVOTHYROXINE 0.1 MG [Concomitant]
  3. OMEPRAZOLE 40MG [Concomitant]
     Active Substance: OMEPRAZOLE
  4. LEVOCETIRIZINE 5MG [Concomitant]
     Active Substance: LEVOCETIRIZINE
  5. ARNUITY ELLIPTA 50MCG [Concomitant]
  6. IPRATROPIUM/ALB 0.5/3MG NEBS [Concomitant]
  7. BETHKIS [Suspect]
     Active Substance: TOBRAMYCIN
     Indication: PSEUDOMONAS TEST POSITIVE
     Route: 055
  8. TRIUMEQ [Concomitant]
     Active Substance: ABACAVIR SULFATE\DOLUTEGRAVIR SODIUM\LAMIVUDINE
  9. PROAIR MDI [Concomitant]

REACTIONS (3)
  - Dyspnoea [None]
  - Staphylococcal infection [None]
  - Oropharyngeal pain [None]

NARRATIVE: CASE EVENT DATE: 20200510
